FAERS Safety Report 5678608-5 (Version None)
Quarter: 2008Q1

REPORT INFORMATION
  Report Type: 
  Country: None (occurrence: None)
  Receive Date: 20080325
  Receipt Date: 20080314
  Transmission Date: 20080703
  Serious: Yes (Other)
  Sender: FDA-Public Use
  Company Number: US-ROCHE-502322

PATIENT
  Age: 47 Year
  Sex: Male

DRUGS (9)
  1. PEGASYS [Suspect]
     Dosage: FORM: PRE-FILLED SYRINGE
     Route: 065
     Dates: start: 20070501
  2. COPEGUS [Suspect]
     Route: 065
     Dates: start: 20070501
  3. MORPHINE SULFATE [Concomitant]
     Route: 065
  4. VALPROIC ACID [Concomitant]
     Indication: DRUG USE FOR UNKNOWN INDICATION
  5. DIAZEPAM [Concomitant]
     Indication: DRUG USE FOR UNKNOWN INDICATION
     Route: 065
  6. TOPAMAX [Concomitant]
     Indication: DRUG USE FOR UNKNOWN INDICATION
     Route: 065
  7. UNSPECIFIED DRUG [Concomitant]
     Indication: DRUG USE FOR UNKNOWN INDICATION
     Dosage: DRUG REPORTED AS ^ALOH^
     Route: 065
  8. UNSPECIFIED DRUG [Concomitant]
     Dosage: DRUG REPORTED AS ^TRISIL^
     Route: 065
  9. METHADON HCL TAB [Concomitant]
     Indication: NECK PAIN

REACTIONS (20)
  - ABDOMINAL PAIN UPPER [None]
  - ANGER [None]
  - BACK PAIN [None]
  - CHILLS [None]
  - COUGH [None]
  - DRY MOUTH [None]
  - EPILEPSY [None]
  - FOOT FRACTURE [None]
  - GASTROPTOSIS [None]
  - HOSTILITY [None]
  - LIPOMA [None]
  - MALAISE [None]
  - MIGRAINE [None]
  - MUSCULOSKELETAL CHEST PAIN [None]
  - PAIN [None]
  - PERIVASCULAR DERMATITIS [None]
  - PSEUDOLYMPHOMA [None]
  - RASH [None]
  - SPINAL DISORDER [None]
  - STRESS [None]
